FAERS Safety Report 6267414-9 (Version None)
Quarter: 2009Q3

REPORT INFORMATION
  Report Type: 
  Country: None (occurrence: None)
  Receive Date: 20090714
  Receipt Date: 20090702
  Transmission Date: 20100115
  Serious: Yes (Hospitalization, Disabling, Other)
  Sender: FDA-Public Use
  Company Number: AR-PFIZER INC-2008085157

PATIENT
  Age: 64 Year

DRUGS (3)
  1. SUTENT [Suspect]
     Indication: RENAL CANCER
     Dosage: 50 MG, 1X/DAY, 4/2
     Route: 048
     Dates: start: 20080618
  2. SUTENT [Suspect]
     Dosage: 37.5 MG, UNK
     Dates: start: 20081129
  3. OMEPRAZOLE [Concomitant]
     Dosage: 20 MG, UNK
     Dates: end: 20080828

REACTIONS (19)
  - ABDOMINAL DISTENSION [None]
  - AEROPHAGIA [None]
  - AGEUSIA [None]
  - ANXIETY [None]
  - ASTHENIA [None]
  - AVERSION [None]
  - DYSPEPSIA [None]
  - DYSPHAGIA [None]
  - EPISTAXIS [None]
  - GRAND MAL CONVULSION [None]
  - HEADACHE [None]
  - HYPERTENSION [None]
  - HYPOACUSIS [None]
  - MALAISE [None]
  - MUCOSAL INFLAMMATION [None]
  - PALMAR-PLANTAR ERYTHRODYSAESTHESIA SYNDROME [None]
  - POLYDIPSIA [None]
  - RESTLESSNESS [None]
  - VERTIGO [None]
